FAERS Safety Report 6653353-8 (Version None)
Quarter: 2010Q1

REPORT INFORMATION
  Report Type: 
  Country: None (occurrence: None)
  Receive Date: 20100326
  Receipt Date: 20100311
  Transmission Date: 20100710
  Serious: Yes (Other)
  Sender: FDA-Public Use
  Company Number: PHEH2008US06333

PATIENT
  Sex: Female
  Weight: 74.104 kg

DRUGS (19)
  1. AREDIA [Suspect]
     Dosage: UNK
     Dates: start: 20040101, end: 20081201
  2. ZOMETA [Suspect]
     Dosage: UNK
     Dates: start: 20040101, end: 20081201
  3. TAMOXIFEN CITRATE [Concomitant]
  4. PERIDEX [Concomitant]
  5. OXYCONTIN [Concomitant]
     Dosage: UNK
     Route: 048
  6. VICODIN [Concomitant]
     Dosage: UNK
     Route: 048
  7. TAXOL [Concomitant]
     Dosage: UNK
  8. ADRIAMYCIN PFS [Concomitant]
     Dosage: UNK
  9. CYTOXAN [Concomitant]
     Dosage: UNK
  10. ZOLOFT [Concomitant]
     Dosage: 100MG QD
  11. TYLOX [Concomitant]
     Dosage: UNK
     Route: 048
  12. ARIMIDEX [Concomitant]
     Dosage: 1 MG, UNK
     Route: 048
  13. OXYCODONE [Concomitant]
  14. VANCOMYCIN [Concomitant]
     Dosage: 1.5 GM, QD
     Route: 042
  15. REGLAN [Concomitant]
     Dosage: 10 MG, TID
  16. CIPRO [Concomitant]
     Dosage: 500 MG, UNK
  17. CHLORHEXIDINE GLUCONATE [Concomitant]
  18. FEMARA [Concomitant]
  19. NAVELBINE [Concomitant]

REACTIONS (38)
  - ANHEDONIA [None]
  - ANXIETY [None]
  - ASTHENIA [None]
  - BONE DISORDER [None]
  - BONE FORMATION INCREASED [None]
  - BURNS THIRD DEGREE [None]
  - CHEST WALL OPERATION [None]
  - DENTURE WEARER [None]
  - DISCOMFORT [None]
  - EMOTIONAL DISTRESS [None]
  - GAIT DISTURBANCE [None]
  - GOUT [None]
  - HYPOPHAGIA [None]
  - INCISION SITE ERYTHEMA [None]
  - INCISION SITE OEDEMA [None]
  - INJURY [None]
  - JAW FRACTURE [None]
  - JAW OPERATION [None]
  - LIFE EXPECTANCY SHORTENED [None]
  - MALIGNANT NEOPLASM PROGRESSION [None]
  - METASTASES TO BONE [None]
  - ORAL DYSAESTHESIA [None]
  - OSTEOMYELITIS CHRONIC [None]
  - OSTEONECROSIS [None]
  - OSTEOSCLEROSIS [None]
  - PAIN [None]
  - PAIN IN JAW [None]
  - PHYSICAL DISABILITY [None]
  - POLYARTHRITIS [None]
  - PYREXIA [None]
  - RADIATION SKIN INJURY [None]
  - SCAR [None]
  - SKIN NECROSIS [None]
  - SWELLING FACE [None]
  - TOOTH DISORDER [None]
  - TOOTH EXTRACTION [None]
  - WEIGHT DECREASED [None]
  - WEIGHT INCREASED [None]
